FAERS Safety Report 15738695 (Version 1)
Quarter: 2018Q4

REPORT INFORMATION
  Report Type: Report from Study
  Country: DZ (occurrence: DZ)
  Receive Date: 20181219
  Receipt Date: 20181219
  Transmission Date: 20190205
  Serious: Yes (Other)
  Sender: FDA-Public Use
  Company Number: DZ-ROCHE-2232388

PATIENT

DRUGS (2)
  1. TOCILIZUMAB. [Suspect]
     Active Substance: TOCILIZUMAB
     Indication: INFLAMMATION
     Route: 065
  2. RITUXIMAB. [Suspect]
     Active Substance: RITUXIMAB
     Indication: INFLAMMATION
     Route: 065

REACTIONS (6)
  - Psoriasis [Unknown]
  - Skin cancer [Unknown]
  - Dermatitis allergic [Unknown]
  - Skin infection [Unknown]
  - Injection related reaction [Unknown]
  - Eczema [Unknown]
